FAERS Safety Report 23272231 (Version 2)
Quarter: 2024Q4

REPORT INFORMATION
  Report Type: Spontaneous
  Country: CZ (occurrence: CZ)
  Receive Date: 20231207
  Receipt Date: 20241004
  Transmission Date: 20250115
  Serious: Yes (Other)
  Sender: SANDOZ
  Company Number: CZ-CELLTRION HEALTHCARE HUNGARY KFT-2023CZ014813

PATIENT
  Age: 70 Year
  Sex: Male

DRUGS (8)
  1. ACALABRUTINIB [Suspect]
     Active Substance: ACALABRUTINIB
     Indication: Chronic lymphocytic leukaemia
     Dosage: UNK
     Route: 065
     Dates: start: 202205
  2. CYCLOPHOSPHAMIDE [Suspect]
     Active Substance: CYCLOPHOSPHAMIDE
     Indication: Chronic lymphocytic leukaemia
     Dosage: 6 CYCLES
     Route: 065
     Dates: start: 202103, end: 202106
  3. DEXAMETHASONE [Suspect]
     Active Substance: DEXAMETHASONE
     Indication: Chronic lymphocytic leukaemia
     Dosage: 6 CYCLES
     Route: 065
     Dates: start: 202103, end: 202106
  4. METHYLPREDNISOLONE [Suspect]
     Active Substance: METHYLPREDNISOLONE
     Dosage: 250 MG (TWO PULSES; DAYS 1-3) ROUTE OF ADMIN (FREE TEXT): INTRAVENOUS (NOT OTHERWISE SPECIFIED)
     Route: 065
  5. METHYLPREDNISOLONE [Suspect]
     Active Substance: METHYLPREDNISOLONE
     Indication: Chronic lymphocytic leukaemia
     Dosage: 250 MG FOR 5 DAYS (1ST LINE OF TREATMENT) ROUTE OF ADMIN (FREE TEXT): INTRAVENOUS (NOT OTHERWISE SPE
     Route: 065
  6. PREDNISONE [Suspect]
     Active Substance: PREDNISONE
     Indication: Chronic lymphocytic leukaemia
     Dosage: 20 MG (WITH GRADUAL WITHDRAWAL OVER THE COURSE OF 1 MONTH)
     Route: 065
  7. PREDNISONE [Suspect]
     Active Substance: PREDNISONE
     Dosage: 40 MG (WITH A GRADUAL REDUCTION OF THE DOSE UNTIL WITHDRAWAL)
     Route: 065
  8. RITUXIMAB [Suspect]
     Active Substance: RITUXIMAB
     Indication: Chronic lymphocytic leukaemia
     Dosage: 6 CYCLES
     Route: 065
     Dates: start: 202103, end: 202106

REACTIONS (5)
  - COVID-19 [Unknown]
  - Meningitis listeria [Recovering/Resolving]
  - Immunosuppression [Unknown]
  - Pneumonia klebsiella [Recovering/Resolving]
  - Therapy partial responder [Unknown]

NARRATIVE: CASE EVENT DATE: 20210901
